FAERS Safety Report 7637063-6 (Version None)
Quarter: 2011Q3

REPORT INFORMATION
  Report Type: 
  Country: None (occurrence: None)
  Receive Date: 20110726
  Receipt Date: 20110714
  Transmission Date: 20111222
  Serious: Yes (Other)
  Sender: FDA-Public Use
  Company Number: US-ASTRAZENECA-2011SE42184

PATIENT
  Age: 39 Year
  Sex: Female
  Weight: 52.2 kg

DRUGS (14)
  1. PROTONIX [Suspect]
     Route: 065
  2. PROTONIX [Suspect]
     Indication: GASTROOESOPHAGEAL REFLUX DISEASE
     Route: 065
     Dates: start: 20050101
  3. MAGNESIUM CITRATE [Concomitant]
  4. THIAMINE HYDROCHLORIDE [Concomitant]
  5. OMEPRAZOLE [Suspect]
     Indication: GASTROOESOPHAGEAL REFLUX DISEASE
     Route: 048
  6. LACTOBACILLUS ACIDOPHILUS [Concomitant]
     Indication: HYPERTENSION
     Dosage: TWO TIMES A DAY
  7. MULTIVITAMINS (ASCORBIC ACID, ERGOCALCIFEROL) [Concomitant]
  8. RIBOFLAVIN [Concomitant]
  9. OMEPRAZOLE [Suspect]
     Route: 048
     Dates: start: 20091112, end: 20110201
  10. MULTIVITAMIN (RAINBOW LIGHT WOMEN'S 1) [Concomitant]
     Dosage: DAILY
  11. CALCIUM CITRATE/COLECALCIFEROL [Concomitant]
  12. MULTIVITAMINS (PANTHENOL, RETINOL) [Concomitant]
  13. BISOPROLOL FUMARATE AND HYDROCHLOROTHIAZIDE [Suspect]
     Indication: HYPERTENSION
     Dosage: 10/6.25 MG DAILY
     Route: 065
     Dates: start: 19980101, end: 20110609
  14. MULTIVITAMINS (FOLIC ACID, NICOTINAMIDE) [Concomitant]

REACTIONS (6)
  - BACK PAIN [None]
  - FLATULENCE [None]
  - LACTOSE INTOLERANCE [None]
  - DYSPEPSIA [None]
  - ABDOMINAL PAIN LOWER [None]
  - GASTROENTERITIS BACTERIAL [None]
